FAERS Safety Report 6159654-4 (Version None)
Quarter: 2009Q2

REPORT INFORMATION
  Report Type: 
  Country: None (occurrence: None)
  Receive Date: 20090420
  Receipt Date: 20090409
  Transmission Date: 20091009
  Serious: Yes (Death, Other)
  Sender: FDA-Public Use
  Company Number: US-BAYER-US-2005-027225

PATIENT
  Age: 48 Year
  Sex: Male
  Weight: 79 kg

DRUGS (10)
  1. BETASERON [Suspect]
     Indication: RELAPSING-REMITTING MULTIPLE SCLEROSIS
     Dosage: TOTAL DAILY DOSE: 8 MIU
     Route: 058
     Dates: start: 20050304, end: 20080929
  2. PREDNISONE [Suspect]
     Indication: MULTIPLE SCLEROSIS
     Dosage: 1 G, X 4 DAYS
     Route: 042
     Dates: start: 20051107, end: 20051110
  3. TAGAMET [Suspect]
  4. NEURONTIN [Concomitant]
     Indication: CONVULSION
     Dosage: TOTAL DAILY DOSE: 600 MG
  5. NEURONTIN [Concomitant]
  6. ELAVIL [Concomitant]
     Indication: HEADACHE
     Dosage: 1-2, DAILY
  7. ELAVIL [Concomitant]
     Dosage: TOTAL DAILY DOSE: 50 MG
  8. CIMETIDINE HCL [Concomitant]
     Dosage: UNK, UNK
  9. CORTICOSTEROIDS [Concomitant]
  10. CLONAZEPAM [Concomitant]
     Dosage: TOTAL DAILY DOSE: 60 MG

REACTIONS (17)
  - AMNESIA [None]
  - ASTHENIA [None]
  - BURNING SENSATION [None]
  - CEREBRAL ATROPHY [None]
  - CHEST PAIN [None]
  - CONVULSION [None]
  - DEPRESSION [None]
  - DRUG INTERACTION [None]
  - HAEMATEMESIS [None]
  - HICCUPS [None]
  - HYPOAESTHESIA [None]
  - MALAISE [None]
  - MULTIPLE SCLEROSIS [None]
  - MYOCARDIAL INFARCTION [None]
  - NAUSEA [None]
  - OVERDOSE [None]
  - PANCREATIC DISORDER [None]
